FAERS Safety Report 7234331-7 (Version None)
Quarter: 2011Q1

REPORT INFORMATION
  Report Type: 
  Country: None (occurrence: None)
  Receive Date: 20110119
  Receipt Date: 20110110
  Transmission Date: 20110831
  Serious: Yes (Hospitalization, Other)
  Sender: FDA-Public Use
  Company Number: US-PFIZER INC-2009300378

PATIENT
  Sex: Female

DRUGS (10)
  1. LIPITOR [Suspect]
     Dosage: UNK
  2. LASIX [Suspect]
     Indication: DIURETIC THERAPY
  3. LASIX [Suspect]
     Indication: CARDIAC FAILURE CONGESTIVE
  4. WARFARIN [Suspect]
     Dosage: UNK
  5. LOVENOX [Suspect]
  6. DRONEDARONE [Suspect]
  7. CARVEDILOL [Suspect]
     Dosage: UNK
  8. PREMARIN [Suspect]
     Indication: OESTROGEN REPLACEMENT THERAPY
     Dosage: UNK
     Dates: start: 19630101
  9. LASIX [Suspect]
     Indication: SWELLING
     Dosage: 40 MG, 1X/DAY
     Route: 048
  10. LISINOPRIL [Suspect]
     Dosage: UNK

REACTIONS (5)
  - INJECTION SITE PAIN [None]
  - ATRIAL FIBRILLATION [None]
  - CARDIAC FAILURE CONGESTIVE [None]
  - INJECTION SITE HAEMATOMA [None]
  - ADVERSE REACTION [None]
